FAERS Safety Report 7395549-6 (Version None)
Quarter: 2011Q2

REPORT INFORMATION
  Report Type: 
  Country: None (occurrence: None)
  Receive Date: 20110405
  Receipt Date: 20110322
  Transmission Date: 20111010
  Serious: Yes (Other)
  Sender: FDA-Public Use
  Company Number: PHHY2011US20589

PATIENT
  Sex: Female

DRUGS (1)
  1. EXJADE [Suspect]
     Dosage: 1000 MG, DAILY
     Route: 048

REACTIONS (6)
  - APHAGIA [None]
  - DIABETES MELLITUS [None]
  - NAUSEA [None]
  - GASTRIC DILATATION [None]
  - MUSCLE SPASMS [None]
  - DIARRHOEA [None]
